FAERS Safety Report 11185212 (Version 1)
Quarter: 2015Q2

REPORT INFORMATION
  Report Type: Spontaneous
  Country: US (occurrence: US)
  Receive Date: 20150612
  Receipt Date: 20150612
  Transmission Date: 20150821
  Serious: No
  Sender: FDA-Public Use
  Company Number: US-DSJP-DSU-2014-111815

PATIENT
  Age: 86 Year
  Sex: Female
  Weight: 48.53 kg

DRUGS (5)
  1. COUMADIN [Concomitant]
     Active Substance: WARFARIN SODIUM
     Indication: PRODUCT USED FOR UNKNOWN INDICATION
     Dosage: UNK
     Route: 048
  2. BENICAR [Suspect]
     Active Substance: OLMESARTAN MEDOXOMIL
     Indication: HYPERTENSION
     Dosage: 40 MG, QD
     Route: 048
     Dates: start: 2012, end: 2014
  3. LIPITOR [Concomitant]
     Active Substance: ATORVASTATIN CALCIUM
     Indication: PRODUCT USED FOR UNKNOWN INDICATION
     Dosage: UNK
     Route: 048
  4. DIGOXIN. [Concomitant]
     Active Substance: DIGOXIN
     Indication: PRODUCT USED FOR UNKNOWN INDICATION
     Dosage: UNK
     Route: 048
  5. LASIX [Concomitant]
     Active Substance: FUROSEMIDE
     Indication: PRODUCT USED FOR UNKNOWN INDICATION
     Dosage: UNK
     Route: 048

REACTIONS (9)
  - Renal disorder [Recovered/Resolved]
  - Hypertension [Unknown]
  - Weight decreased [Unknown]
  - Viral infection [Recovered/Resolved]
  - Weight gain poor [Unknown]
  - Vomiting [Recovered/Resolved]
  - Faecal incontinence [Recovered/Resolved]
  - Gastrointestinal viral infection [Recovered/Resolved]
  - Diarrhoea [Recovered/Resolved]

NARRATIVE: CASE EVENT DATE: 2012
